FAERS Safety Report 12790907 (Version 1)
Quarter: 2016Q3

REPORT INFORMATION
  Report Type: Spontaneous
  Country: DE (occurrence: DE)
  Receive Date: 20160929
  Receipt Date: 20160929
  Transmission Date: 20161109
  Serious: Yes (Hospitalization, Disabling)
  Sender: FDA-Public Use
  Company Number: DE-SUN PHARMACEUTICAL INDUSTRIES LTD-2016RR-124475

PATIENT
  Sex: Male

DRUGS (7)
  1. METHOTREXAT 10 MG [Concomitant]
     Indication: PRODUCT USED FOR UNKNOWN INDICATION
     Dosage: 10 MG, EVERY WEEK
     Route: 065
  2. FOLSAEURE 5 [Concomitant]
     Indication: PRODUCT USED FOR UNKNOWN INDICATION
     Dosage: 1 DF, EVERY WEEK
     Route: 065
  3. DEKRISTOL 20000 I.E. [Concomitant]
     Indication: PRODUCT USED FOR UNKNOWN INDICATION
     Dosage: 1 DF, EVERY 2 WEEK
     Route: 065
  4. PREDNISOLON 1 MG [Concomitant]
     Indication: PRODUCT USED FOR UNKNOWN INDICATION
     Dosage: 1 MG, QD (0-0-1)
     Route: 065
  5. ATORVASTATIN [Suspect]
     Active Substance: ATORVASTATIN
     Indication: TYPE IIA HYPERLIPIDAEMIA
     Dosage: 10 MG, DAILY
     Route: 065
  6. ASS 100 [Concomitant]
     Active Substance: ASPIRIN
     Indication: PRODUCT USED FOR UNKNOWN INDICATION
     Dosage: 100 MG, QD (1-0-0)
     Route: 065
  7. VERAPAMIL 80 MG [Concomitant]
     Indication: PRODUCT USED FOR UNKNOWN INDICATION
     Dosage: 240 MG, DAILY
     Route: 065

REACTIONS (6)
  - Tendon rupture [Unknown]
  - Impaired healing [Unknown]
  - Wound [Unknown]
  - Debridement [Unknown]
  - Tendon pain [Unknown]
  - Tendon discomfort [Unknown]

NARRATIVE: CASE EVENT DATE: 201506
